FAERS Safety Report 17368760 (Version 2)
Quarter: 2020Q1

REPORT INFORMATION
  Report Type: Spontaneous
  Country: US (occurrence: US)
  Receive Date: 20200204
  Receipt Date: 20200210
  Transmission Date: 20200409
  Serious: No
  Sender: FDA-Public Use
  Company Number: US-009507513-2001USA005379

PATIENT
  Sex: Male
  Weight: 64.4 kg

DRUGS (1)
  1. REMERON [Suspect]
     Active Substance: MIRTAZAPINE
     Indication: DECREASED APPETITE
     Dosage: 15 MILLIGRAM, ONCE AT NIGHT
     Route: 048

REACTIONS (2)
  - Drug ineffective for unapproved indication [Unknown]
  - Product quality issue [Unknown]
